FAERS Safety Report 16257943 (Version 1)
Quarter: 2019Q2

REPORT INFORMATION
  Report Type: Spontaneous
  Country: US (occurrence: US)
  Receive Date: 20190430
  Receipt Date: 20190430
  Transmission Date: 20190711
  Serious: Yes (Hospitalization)
  Sender: FDA-Public Use
  Company Number: US-FRESENIUS MEDICAL CARE RENAL THERAPIES GROUP-FMC-1904-000444

PATIENT
  Age: 70 Year
  Sex: Male

DRUGS (19)
  1. TRAZODONE [Concomitant]
     Active Substance: TRAZODONE HYDROCHLORIDE
  2. ATORVASTATIN [Concomitant]
     Active Substance: ATORVASTATIN
  3. SENSIPAR [Concomitant]
     Active Substance: CINACALCET HYDROCHLORIDE
  4. HYDRALAZINE [Concomitant]
     Active Substance: HYDRALAZINE HYDROCHLORIDE
  5. ZETIA [Concomitant]
     Active Substance: EZETIMIBE
  6. CARVEDILOL. [Concomitant]
     Active Substance: CARVEDILOL
  7. CLONIDINE. [Concomitant]
     Active Substance: CLONIDINE
  8. FERROUS SULFATE. [Concomitant]
     Active Substance: FERROUS SULFATE
  9. ROCALTROL [Concomitant]
     Active Substance: CALCITRIOL
  10. FINASTERIDE. [Concomitant]
     Active Substance: FINASTERIDE
  11. HUMALOG [Concomitant]
     Active Substance: INSULIN LISPRO
  12. VELPHORO [Concomitant]
     Active Substance: FERRIC OXYHYDROXIDE
  13. LISINOPRIL. [Concomitant]
     Active Substance: LISINOPRIL
  14. TYLENOL [Concomitant]
     Active Substance: ACETAMINOPHEN
  15. ASPIRIN. [Concomitant]
     Active Substance: ASPIRIN
  16. DELFLEX WITH DEXTROSE 2.5% LOW MAGNESIUM LOW CALCIUM [Suspect]
     Active Substance: CALCIUM CHLORIDE\DEXTROSE\MAGNESIUM CHLORIDE\SODIUM CHLORIDE\SODIUM LACTATE
     Indication: END STAGE RENAL DISEASE
     Route: 033
     Dates: start: 20150201
  17. AMLODIPINE [Concomitant]
     Active Substance: AMLODIPINE BESYLATE
  18. PLAVIX [Concomitant]
     Active Substance: CLOPIDOGREL BISULFATE
  19. RENA [Concomitant]

REACTIONS (1)
  - Peritonitis [Recovering/Resolving]

NARRATIVE: CASE EVENT DATE: 20190410
